FAERS Safety Report 21361479 (Version 2)
Quarter: 2022Q3

REPORT INFORMATION
  Report Type: Report from Study
  Country: US (occurrence: US)
  Receive Date: 20220921
  Receipt Date: 20220929
  Transmission Date: 20221026
  Serious: Yes (Hospitalization, Other)
  Sender: FDA-Public Use
  Company Number: US-ABBVIE-4127353

PATIENT
  Age: 66 Year
  Sex: Male

DRUGS (1)
  1. HUMIRA [Suspect]
     Active Substance: ADALIMUMAB
     Indication: Rheumatoid arthritis
     Dosage: CITRATE FREE
     Route: 058

REACTIONS (7)
  - Joint injury [Unknown]
  - Face injury [Unknown]
  - Renal failure [Unknown]
  - Fall [Not Recovered/Not Resolved]
  - Blood potassium increased [Unknown]
  - Diabetes mellitus [Unknown]
  - Muscle twitching [Unknown]

NARRATIVE: CASE EVENT DATE: 20210301
